FAERS Safety Report 15738298 (Version 2)
Quarter: 2024Q3

REPORT INFORMATION
  Report Type: Spontaneous
  Country: ES (occurrence: ES)
  Receive Date: 20181219
  Receipt Date: 20240831
  Transmission Date: 20241017
  Serious: Yes (Hospitalization, Other)
  Sender: AUROBINDO
  Company Number: ES-AUROBINDO-AUR-APL-2018-060226

PATIENT
  Age: 46 Year
  Sex: Male

DRUGS (1)
  1. LEVOFLOXACIN [Suspect]
     Active Substance: LEVOFLOXACIN
     Indication: Product used for unknown indication
     Dosage: UNK
     Route: 065
     Dates: start: 20180503

REACTIONS (1)
  - Toxic skin eruption [Unknown]

NARRATIVE: CASE EVENT DATE: 20180514
